FAERS Safety Report 18337407 (Version 1)
Quarter: 2020Q4

REPORT INFORMATION
  Report Type: Report from Study
  Country: None (occurrence: FR)
  Receive Date: 20201002
  Receipt Date: 20201002
  Transmission Date: 20210113
  Serious: Yes (Hospitalization, Other)
  Sender: FDA-Public Use
  Company Number: FR-ABBVIE-20P-056-3591805-00

PATIENT
  Age: 69 Year
  Sex: Male

DRUGS (4)
  1. LEUPRORELIN [Suspect]
     Active Substance: LEUPROLIDE ACETATE
     Indication: PROSTATE CANCER
     Dosage: UNK
     Route: 058
     Dates: start: 20200727, end: 20200727
  2. CABAZITAXEL [Suspect]
     Active Substance: CABAZITAXEL
     Indication: PROSTATE CANCER
     Dosage: 40 MILLIGRAM, CYCLIC
     Route: 042
     Dates: start: 20200807, end: 20200807
  3. CASODEX [Suspect]
     Active Substance: BICALUTAMIDE
     Indication: PROSTATE CANCER
     Dosage: 50 MILLIGRAM, CYCLIC
     Route: 048
     Dates: start: 20200713, end: 20200713
  4. CASODEX [Suspect]
     Active Substance: BICALUTAMIDE
     Dosage: 50 MILLIGRAM, CYCLIC
     Route: 048
     Dates: start: 20200802, end: 20200802

REACTIONS (1)
  - Acute kidney injury [Unknown]

NARRATIVE: CASE EVENT DATE: 20200818
